FAERS Safety Report 8064629-4 (Version None)
Quarter: 2012Q1

REPORT INFORMATION
  Report Type: 
  Country: None (occurrence: None)
  Receive Date: 20120123
  Receipt Date: 20120119
  Transmission Date: 20120608
  Serious: Yes (Death)
  Sender: FDA-Public Use
  Company Number: DE-ASTRAZENECA-2012SE03730

PATIENT
  Age: 21 Year
  Sex: Male
  Weight: 120 kg

DRUGS (1)
  1. PROPOFOL [Suspect]
     Dosage: 3 MG/KG KG 7H
     Route: 042
     Dates: start: 20110726, end: 20110801

REACTIONS (6)
  - HYPERKALAEMIA [None]
  - RHABDOMYOLYSIS [None]
  - PROPOFOL INFUSION SYNDROME [None]
  - MYOGLOBIN BLOOD INCREASED [None]
  - PYREXIA [None]
  - RESUSCITATION [None]
